FAERS Safety Report 8591586-4 (Version None)
Quarter: 2012Q3

REPORT INFORMATION
  Report Type: 
  Country: None (occurrence: None)
  Receive Date: 20120801
  Receipt Date: 20120720
  Transmission Date: 20120928
  Serious: Yes (Other)
  Sender: FDA-Public Use
  Company Number: 2012AP002259

PATIENT
  Age: 53 Year
  Sex: Female

DRUGS (2)
  1. DIVALPROEX SODIUM [Suspect]
     Indication: BIPOLAR II DISORDER
     Dosage: 750 MG;QD
  2. QUETIAPINE FUMARATE [Suspect]
     Indication: BIPOLAR II DISORDER
     Dosage: 300 MG;QD

REACTIONS (2)
  - DRUG INTERACTION [None]
  - HYPERAMMONAEMIC ENCEPHALOPATHY [None]
